FAERS Safety Report 9335565 (Version 2)
Quarter: 2013Q2

REPORT INFORMATION
  Report Type: Spontaneous
  Country: RO (occurrence: RO)
  Receive Date: 20130605
  Receipt Date: 20130620
  Transmission Date: 20140414
  Serious: Yes (Life-Threatening, Hospitalization, Other)
  Sender: FDA-Public Use
  Company Number: RO-GLAXOSMITHKLINE-B0897307A

PATIENT
  Age: 61 Year
  Sex: Female

DRUGS (1)
  1. ZINNAT [Suspect]
     Indication: SINUSITIS
     Dosage: 500MG SINGLE DOSE
     Route: 065
     Dates: start: 20130507, end: 20130507

REACTIONS (2)
  - Anaphylactic shock [Recovered/Resolved]
  - Product quality issue [Unknown]
